FAERS Safety Report 7031085-4 (Version None)
Quarter: 2010Q4

REPORT INFORMATION
  Report Type: 
  Country: None (occurrence: None)
  Receive Date: 20101001
  Receipt Date: 20100219
  Transmission Date: 20110411
  Serious: Yes (Other)
  Sender: FDA-Public Use
  Company Number: 707786

PATIENT
  Age: 76 Year
  Sex: Female

DRUGS (2)
  1. PACLITAXEL [Suspect]
     Indication: NEOPLASM
     Dosage: 100 MG MILLIGRAM(S), INTRAVENOUS
     Route: 042
     Dates: start: 20091211, end: 20091211
  2. CARBOPLATIN [Concomitant]

REACTIONS (6)
  - BRONCHOSPASM [None]
  - CHEST DISCOMFORT [None]
  - COUGH [None]
  - DYSPNOEA [None]
  - HYPERSENSITIVITY [None]
  - VOMITING [None]
